FAERS Safety Report 5094157-X (Version None)
Quarter: 2006Q3

REPORT INFORMATION
  Report Type: 
  Country: None (occurrence: None)
  Receive Date: 20060831
  Receipt Date: 20060821
  Transmission Date: 20061208
  Serious: Yes (Other)
  Sender: FDA-Public Use
  Company Number: 2006UW16902

PATIENT
  Age: 66 Year
  Sex: Female

DRUGS (2)
  1. SEROQUEL [Suspect]
     Indication: DEMENTIA
     Route: 048
  2. RISPERDAL [Concomitant]

REACTIONS (2)
  - ATRIAL FIBRILLATION [None]
  - CARDIOTOXICITY [None]
